FAERS Safety Report 8832299 (Version 2)
Quarter: 2012Q4

REPORT INFORMATION
  Report Type: 
  Country: CA (occurrence: CA)
  Receive Date: 20121009
  Receipt Date: 20121106
  Transmission Date: 20130627
  Serious: Yes (Hospitalization, Other)
  Sender: FDA-Public Use
  Company Number: PHHO2005CA07224

PATIENT
  Sex: Female

DRUGS (8)
  1. SANDOSTATIN LAR [Suspect]
     Indication: ACROMEGALY
     Dosage: 3 mg once a month
     Route: 030
     Dates: start: 19980601
  2. VACCINES [Suspect]
  3. INSULIN [Concomitant]
  4. APO-METFORMIN [Concomitant]
     Dosage: 500 mg, TID
     Route: 048
  5. HUMALOG MIX 25 [Concomitant]
  6. AVANDIA [Concomitant]
  7. PEGVISOMANT [Concomitant]
     Dosage: 15 mg, UNK
     Route: 058
  8. ALENDRONIC ACID [Concomitant]
     Dosage: 70 mg, QW

REACTIONS (19)
  - Oropharyngeal pain [Unknown]
  - Cystocele [Recovered/Resolved]
  - Stress urinary incontinence [Recovered/Resolved]
  - Parakeratosis [Recovered/Resolved]
  - Cough [Unknown]
  - Hyperglycaemia [Unknown]
  - Hypersensitivity [Unknown]
  - Lymphadenopathy [Not Recovered/Not Resolved]
  - Malaise [Unknown]
  - Blood pressure decreased [Unknown]
  - Nasopharyngitis [Recovering/Resolving]
  - Feeling abnormal [Unknown]
  - Dizziness [Not Recovered/Not Resolved]
  - Diarrhoea [Unknown]
  - Nausea [Unknown]
  - Fatigue [Not Recovered/Not Resolved]
  - Headache [Unknown]
  - Injection site pain [Unknown]
  - Hypoglycaemia [Unknown]
